FAERS Safety Report 5836412-9 (Version None)
Quarter: 2008Q3

REPORT INFORMATION
  Report Type: 
  Country: None (occurrence: None)
  Receive Date: 20080807
  Receipt Date: 20080723
  Transmission Date: 20090109
  Serious: Yes (Life-Threatening)
  Sender: FDA-Public Use
  Company Number: PHHY2008JP13233

PATIENT
  Age: 70 Year
  Sex: Male

DRUGS (3)
  1. SALAGEN [Suspect]
     Indication: DRY MOUTH
     Dosage: 5 MG, TID
     Route: 048
     Dates: start: 20080107, end: 20080523
  2. TEGAFUR [Concomitant]
  3. RADIOTHERAPY [Concomitant]
     Dosage: 66GY
     Dates: end: 20080222

REACTIONS (4)
  - BLOOD CREATININE INCREASED [None]
  - BLOOD UREA INCREASED [None]
  - MALAISE [None]
  - URINARY RETENTION [None]
